FAERS Safety Report 4996323-8 (Version None)
Quarter: 2006Q2

REPORT INFORMATION
  Report Type: 
  Country: None (occurrence: None)
  Receive Date: 20060505
  Receipt Date: 20060419
  Transmission Date: 20061013
  Serious: Yes (Hospitalization)
  Sender: FDA-Public Use
  Company Number: 224515

PATIENT
  Age: 63 Year
  Sex: Female
  Weight: 80 kg

DRUGS (4)
  1. AVASTIN [Suspect]
     Indication: COLORECTAL CANCER
     Dosage: 5 MG/KG, Q2W, INTRAVENOUS
     Route: 042
     Dates: start: 20051108
  2. IRINOTECAN HCL [Suspect]
     Indication: COLORECTAL CANCER
     Dosage: 180 MG/M2, Q2W; INTRAVENOUS
     Route: 042
     Dates: start: 20051108
  3. FLUOROURACIL [Suspect]
     Indication: COLORECTAL CANCER
     Dosage: 2340 MG, Q2W; INTRAVENOUS,
     Route: 042
     Dates: start: 20051108
  4. 5-FU (FLUOROURACIL) REGIMEN 2 [Suspect]
     Dosage: 400 MG.M2, UNK, IV BOLUS
     Route: 040
     Dates: start: 20051108

REACTIONS (4)
  - CHILLS [None]
  - HYPERTHERMIA [None]
  - PLATELET COUNT DECREASED [None]
  - WHITE BLOOD CELL COUNT DECREASED [None]
